FAERS Safety Report 14628109 (Version 1)
Quarter: 2018Q1

REPORT INFORMATION
  Report Type: Spontaneous
  Country: US (occurrence: US)
  Receive Date: 20180312
  Receipt Date: 20180312
  Transmission Date: 20180509
  Serious: No
  Sender: FDA-Public Use
  Company Number: US-ALLERGAN-1721508US

PATIENT
  Sex: Female

DRUGS (2)
  1. ESTRACE [Suspect]
     Active Substance: ESTRADIOL
     Indication: MENOPAUSE
     Dosage: 2 G, THREE TIMES A WEEK
     Route: 067
     Dates: start: 2008
  2. ESTRACE [Suspect]
     Active Substance: ESTRADIOL
     Dosage: 1 G, THREE TIMES A WEEK
     Route: 067

REACTIONS (5)
  - Abdominal distension [Recovered/Resolved]
  - Premenstrual syndrome [Recovered/Resolved]
  - Feeling abnormal [Recovered/Resolved]
  - Appetite disorder [Recovered/Resolved]
  - Inappropriate schedule of drug administration [Unknown]
